FAERS Safety Report 14385988 (Version 1)
Quarter: 2018Q1

REPORT INFORMATION
  Report Type: Spontaneous
  Country: US (occurrence: US)
  Receive Date: 20180115
  Receipt Date: 20180115
  Transmission Date: 20180509
  Serious: Yes (Other)
  Sender: FDA-Public Use
  Company Number: US-BAYER-2018-007341

PATIENT
  Age: 62 Year
  Sex: Female
  Weight: 102 kg

DRUGS (2)
  1. ALKA-SELTZER ORIGINAL [Suspect]
     Active Substance: ANHYDROUS CITRIC ACID\ASPIRIN\SODIUM BICARBONATE
     Indication: SPINAL COLUMN STENOSIS
     Dosage: 2 DF, QD
     Route: 048
  2. GABAPENTIN. [Concomitant]
     Active Substance: GABAPENTIN
     Dosage: UNK

REACTIONS (6)
  - Poor quality drug administered [Unknown]
  - Liver disorder [None]
  - Product use in unapproved indication [Unknown]
  - Tinnitus [Not Recovered/Not Resolved]
  - Product taste abnormal [None]
  - Product odour abnormal [Unknown]

NARRATIVE: CASE EVENT DATE: 20180110
